FAERS Safety Report 7427824-0 (Version None)
Quarter: 2011Q2

REPORT INFORMATION
  Report Type: 
  Country: None (occurrence: None)
  Receive Date: 20110421
  Receipt Date: 20110114
  Transmission Date: 20111010
  Serious: Yes (Other)
  Sender: FDA-Public Use
  Company Number: US-RB-019313-11

PATIENT
  Sex: Female

DRUGS (1)
  1. DELSYM [Suspect]
     Indication: COUGH
     Dosage: PATIENT TOOK 70ML OF AN UNSPECIFIED DELSYM PRODUCT IN A 3 HOUR TIMEFRAME.
     Route: 048

REACTIONS (3)
  - COMA [None]
  - OVERDOSE [None]
  - LOSS OF CONSCIOUSNESS [None]
